FAERS Safety Report 7766755-3 (Version None)
Quarter: 2011Q3

REPORT INFORMATION
  Report Type: 
  Country: None (occurrence: None)
  Receive Date: 20110922
  Receipt Date: 20101209
  Transmission Date: 20111222
  Serious: No
  Sender: FDA-Public Use
  Company Number: US-ASTRAZENECA-2010SE58367

PATIENT
  Age: 37 Year
  Sex: Male
  Weight: 99.8 kg

DRUGS (4)
  1. SEROQUEL [Suspect]
     Route: 048
     Dates: end: 20101201
  2. SEROQUEL [Suspect]
     Indication: INSOMNIA
     Dosage: 2 DOSES FORM  AT NIGHT
     Route: 048
     Dates: start: 20101001
  3. SEROQUEL [Suspect]
     Route: 048
     Dates: end: 20101201
  4. SEROQUEL [Suspect]
     Indication: BIPOLAR DISORDER
     Dosage: 2 DOSES FORM  AT NIGHT
     Route: 048
     Dates: start: 20101001

REACTIONS (3)
  - DRUG DOSE OMISSION [None]
  - INSOMNIA [None]
  - ABDOMINAL PAIN UPPER [None]
